FAERS Safety Report 15963841 (Version 1)
Quarter: 2019Q1

REPORT INFORMATION
  Report Type: Report from Study
  Country: US (occurrence: US)
  Receive Date: 20190214
  Receipt Date: 20190214
  Transmission Date: 20190417
  Serious: Yes (Hospitalization)
  Sender: FDA-Public Use
  Company Number: US-ACTELION-A-NJ2018-178910

PATIENT
  Age: 34 Year
  Sex: Male
  Weight: 136.5 kg

DRUGS (5)
  1. VELETRI [Suspect]
     Active Substance: EPOPROSTENOL
     Dosage: 8 NG/KG, PER MIN
     Route: 042
  2. VELETRI [Suspect]
     Active Substance: EPOPROSTENOL
     Dosage: 6 NG/KG, PER MIN
     Route: 042
  3. VELETRI [Suspect]
     Active Substance: EPOPROSTENOL
     Dosage: 14 NG/KG, PER MIN
     Route: 042
  4. VELETRI [Suspect]
     Active Substance: EPOPROSTENOL
     Indication: PULMONARY ARTERIAL HYPERTENSION
     Dosage: 18 NG/KG, PER MIN
     Route: 042
  5. VELETRI [Suspect]
     Active Substance: EPOPROSTENOL
     Dosage: 3 NG/KG, PER MIN
     Route: 042

REACTIONS (24)
  - Rash pruritic [Unknown]
  - Influenza like illness [Recovered/Resolved]
  - Arthralgia [Unknown]
  - Erythema [Unknown]
  - Cough [Unknown]
  - Device dislocation [Recovered/Resolved]
  - Pain in jaw [Unknown]
  - Flushing [Unknown]
  - Headache [Unknown]
  - Blister [Unknown]
  - Catheter site discharge [Unknown]
  - Catheter site erythema [Unknown]
  - Diarrhoea [Unknown]
  - Skin irritation [Unknown]
  - Rash [Unknown]
  - Skin weeping [Unknown]
  - Nausea [Unknown]
  - Catheter site pain [Unknown]
  - Pyrexia [Unknown]
  - Pain [Unknown]
  - Respiratory tract infection [Unknown]
  - Catheter management [Recovered/Resolved]
  - Gout [Unknown]
  - Catheter site rash [Unknown]

NARRATIVE: CASE EVENT DATE: 201901
